FAERS Safety Report 5170966-3 (Version None)
Quarter: 2006Q4

REPORT INFORMATION
  Report Type: 
  Country: None (occurrence: None)
  Receive Date: 20061213
  Receipt Date: 20051214
  Transmission Date: 20070319
  Serious: Yes (Hospitalization)
  Sender: FDA-Public Use
  Company Number: GR-ABBOTT-05P-066-0319730-00

PATIENT
  Sex: Female
  Weight: 71 kg

DRUGS (7)
  1. HUMIRA [Suspect]
     Indication: RHEUMATOID ARTHRITIS
     Route: 058
     Dates: start: 20050211
  2. METHYLPREDNISOLONE [Concomitant]
     Indication: RHEUMATOID ARTHRITIS
     Dates: start: 19940101
  3. SALOGEN [Concomitant]
     Indication: SJOGREN'S SYNDROME
     Dates: start: 20050101
  4. ALENDRONATE SODIUM [Concomitant]
     Indication: OSTEOPOROSIS
     Dates: start: 19960101
  5. CALCORAL [Concomitant]
     Indication: OSTEOPOROSIS
     Dates: start: 19960101
  6. ALFACALCIDOL [Concomitant]
     Indication: OSTEOPOROSIS
     Dates: start: 19960101
  7. LEVOTHYROXINE SODIUM [Concomitant]
     Indication: GOITRE
     Dates: start: 19781001

REACTIONS (1)
  - SOFT TISSUE INFLAMMATION [None]
